FAERS Safety Report 26065719 (Version 1)
Quarter: 2025Q4

REPORT INFORMATION
  Report Type: Spontaneous
  Country: US (occurrence: None)
  Receive Date: 20251119
  Receipt Date: 20251119
  Transmission Date: 20260118
  Serious: Yes (Hospitalization)
  Sender: FDA-CTU
  Company Number: None

PATIENT
  Age: 74 Year
  Sex: Female

DRUGS (2)
  1. TAVNEOS [Suspect]
     Active Substance: AVACOPAN
     Route: 048
     Dates: start: 20251107
  2. TAVNEOS [Concomitant]
     Active Substance: AVACOPAN
     Dates: start: 20251107

REACTIONS (4)
  - Ocular hyperaemia [None]
  - Eye pruritus [None]
  - Dialysis [None]
  - Epistaxis [None]

NARRATIVE: CASE EVENT DATE: 20251119
